FAERS Safety Report 7396864-2 (Version None)
Quarter: 2011Q2

REPORT INFORMATION
  Report Type: 
  Country: None (occurrence: None)
  Receive Date: 20110406
  Receipt Date: 20110329
  Transmission Date: 20111010
  Serious: Yes (Other)
  Sender: FDA-Public Use
  Company Number: AR-BAXTER-2011BH008389

PATIENT
  Age: 46 Year
  Sex: Male

DRUGS (1)
  1. FACTOR VIII, UNSPECIFIED [Suspect]
     Indication: FACTOR VIII DEFICIENCY
     Route: 065

REACTIONS (2)
  - HEPATITIS NON-A NON-B [None]
  - FACTOR VIII INHIBITION [None]
